FAERS Safety Report 8089877-9 (Version None)
Quarter: 2012Q1

REPORT INFORMATION
  Report Type: 
  Country: None (occurrence: None)
  Receive Date: 20120129
  Receipt Date: 20111020
  Transmission Date: 20120608
  Serious: No
  Sender: FDA-Public Use
  Company Number: US-ABBOTT-11P-163-0867220-00

PATIENT
  Sex: Female

DRUGS (3)
  1. HUMIRA [Suspect]
     Dosage: 2 PENS, DAY 15
     Dates: start: 20111001
  2. HUMIRA [Suspect]
     Dosage: 1 PEN, EVERY OTHER WEEK
     Dates: start: 20111001
  3. HUMIRA [Suspect]
     Indication: CROHN'S DISEASE
     Dosage: 4 PENS, DAY 1
     Dates: start: 20111014

REACTIONS (1)
  - FATIGUE [None]
